FAERS Safety Report 5371765-X (Version None)
Quarter: 2007Q2

REPORT INFORMATION
  Report Type: 
  Country: None (occurrence: None)
  Receive Date: 20070625
  Receipt Date: 20070615
  Transmission Date: 20071010
  Serious: Yes (Hospitalization)
  Sender: FDA-Public Use
  Company Number: 028-C5013-07051045

PATIENT
  Age: 71 Year
  Sex: Male

DRUGS (5)
  1. CC-5013 (LENALIDOMIDE) [Suspect]
     Indication: MULTIPLE MYELOMA
     Dosage: 25 MG, DAILY X 21 DAYS, ORAL
     Route: 048
     Dates: start: 20061221, end: 20070516
  2. DEXAMETHASONE [Suspect]
     Indication: MULTIPLE MYELOMA
     Dosage: 40 MG, DAILY ON DAYS 1-4 OF 28-DAY CYCLE, ORAL
     Route: 048
  3. VALTREX [Concomitant]
  4. METFORMIN          (METFORMIN) (TABLETS) [Concomitant]
  5. PAMIDRONATE DISODIUM [Concomitant]

REACTIONS (5)
  - INFLUENZA [None]
  - NEUTROPHIL COUNT DECREASED [None]
  - PLATELET COUNT DECREASED [None]
  - PNEUMONIA [None]
  - WHITE BLOOD CELL COUNT DECREASED [None]
